FAERS Safety Report 5048855-4 (Version None)
Quarter: 2006Q3

REPORT INFORMATION
  Report Type: 
  Country: None (occurrence: None)
  Receive Date: 20060712
  Receipt Date: 20060615
  Transmission Date: 20061208
  Serious: Yes (Hospitalization)
  Sender: FDA-Public Use
  Company Number: US-AVENTIS-200615297US

PATIENT
  Sex: Female

DRUGS (4)
  1. KETEK [Suspect]
     Indication: BRONCHIECTASIS
  2. CARDIZEM [Concomitant]
     Dosage: DOSE: UNK
  3. ZOCOR [Concomitant]
     Dosage: DOSE: UNK
  4. FOSAMAX [Concomitant]
     Dosage: DOSE: UNK

REACTIONS (5)
  - COUGH [None]
  - DRUG INEFFECTIVE [None]
  - DYSPNOEA [None]
  - PNEUMONIA [None]
  - STAPHYLOCOCCAL INFECTION [None]
